FAERS Safety Report 5981060-3 (Version None)
Quarter: 2008Q4

REPORT INFORMATION
  Report Type: 
  Country: None (occurrence: None)
  Receive Date: 20081205
  Receipt Date: 20081023
  Transmission Date: 20090506
  Serious: No
  Sender: FDA-Public Use
  Company Number: A0753220A

PATIENT
  Age: 32 Year
  Sex: Female

DRUGS (1)
  1. COMMIT NICOTINE POLACRILEX CAPPUCCINO LOZENGE [Suspect]
     Indication: DRUG USE FOR UNKNOWN INDICATION

REACTIONS (1)
  - NAUSEA [None]
